FAERS Safety Report 16061626 (Version 5)
Quarter: 2020Q2

REPORT INFORMATION
  Report Type: Spontaneous
  Country: US (occurrence: US)
  Receive Date: 20190312
  Receipt Date: 20200402
  Transmission Date: 20200713
  Serious: No
  Sender: FDA-Public Use
  Company Number: US-PFIZER INC-2019103359

PATIENT
  Age: 36 Year
  Sex: Female

DRUGS (3)
  1. XELJANZ [Suspect]
     Active Substance: TOFACITINIB CITRATE
     Indication: RHEUMATOID ARTHRITIS
     Dosage: 5 MG, 2X/DAY
     Dates: start: 20180801
  2. XELJANZ [Suspect]
     Active Substance: TOFACITINIB CITRATE
     Dosage: 5 MG, 2X/DAY
     Route: 048
     Dates: start: 201901
  3. XELJANZ [Suspect]
     Active Substance: TOFACITINIB CITRATE
     Dosage: 5 MG, 2X/DAY
     Dates: start: 20180830

REACTIONS (19)
  - Malaise [Not Recovered/Not Resolved]
  - Stress [Unknown]
  - Product dose omission [Unknown]
  - Back pain [Unknown]
  - Joint swelling [Unknown]
  - Depressed mood [Recovering/Resolving]
  - Pain in extremity [Unknown]
  - Frustration tolerance decreased [Unknown]
  - Arthralgia [Unknown]
  - Respiratory disorder [Unknown]
  - Nasopharyngitis [Unknown]
  - Feeling hot [Unknown]
  - Foot deformity [Unknown]
  - Peripheral swelling [Unknown]
  - Gait disturbance [Unknown]
  - Headache [Unknown]
  - Inflammation [Unknown]
  - Inappropriate schedule of product administration [Unknown]
  - Sinusitis [Unknown]

NARRATIVE: CASE EVENT DATE: 202002
